FAERS Safety Report 8696903 (Version 6)
Quarter: 2012Q4

REPORT INFORMATION
  Report Type: 
  Country: DE (occurrence: DE)
  Receive Date: 20120801
  Receipt Date: 20120913
  Transmission Date: 20130627
  Serious: Yes (Hospitalization, Other)
  Sender: FDA-Public Use
  Company Number: PHHY2012DE064402

PATIENT
  Age: 63 Year
  Sex: Female

DRUGS (16)
  1. FTY 720 [Suspect]
     Indication: MULTIPLE SCLEROSIS
     Dosage: 0.5 mg, QD
     Route: 048
     Dates: start: 20110616, end: 20120717
  2. RITUXIMAB [Suspect]
     Indication: FOLLICLE CENTRE LYMPHOMA, FOLLICULAR GRADE I, II, III STAGE IV
     Dosage: 1 DF, UNK
  3. RITUXIMAB [Suspect]
     Dosage: 375 mg/m2, UNK
     Dates: start: 20120828
  4. TRIMIPRAMINE [Concomitant]
     Indication: SLEEP DISORDER
     Dosage: 10 drp, PRN
     Route: 048
     Dates: start: 20120127
  5. RESTEX [Concomitant]
     Indication: RESTLESS LEGS SYNDROME
     Dosage: 100 mg, UNK
     Route: 048
     Dates: start: 20080115
  6. ASA [Concomitant]
     Dosage: 3 DF, QD
  7. FLOMAX [Concomitant]
     Dosage: 1 DF, QD
  8. PREDNISOLONE [Concomitant]
     Dosage: 1.5 DF, QD
     Route: 048
  9. ALLOPURINOL [Concomitant]
     Dosage: 1 DF, QD
  10. PANTOPRAZOLE [Concomitant]
     Dosage: 40 mg, UNK
  11. TAMSULOSIN [Concomitant]
     Dosage: 1 DF, UNK
  12. NOVAMINSULFON ^LICHTENSTEIN^ [Concomitant]
     Dosage: 40 drp, QID
  13. CELEBREX [Concomitant]
     Indication: ENTHESOPATHY
     Dosage: 1 DF, UNK
     Dates: start: 20120829
  14. CIPROFLOXACIN [Concomitant]
     Indication: NEUTROPHILIA
     Dosage: 2 DF until neutrophilia recovers, UNK
  15. MCP [Concomitant]
     Dosage: metoclopramide albendazole 5mg/ml+ Tropfen 100ml N3
  16. UROMITEXAN [Concomitant]
     Dosage: 400 mg, BID

REACTIONS (31)
  - Follicle centre lymphoma, follicular grade I, II, III stage IV [Recovering/Resolving]
  - Pleural effusion [Recovering/Resolving]
  - Dyspnoea [Recovering/Resolving]
  - Pneumothorax [Recovering/Resolving]
  - Tachycardia [Recovering/Resolving]
  - Bundle branch block left [Unknown]
  - Mitral valve incompetence [Recovering/Resolving]
  - Mean cell volume decreased [Recovering/Resolving]
  - Monocyte count increased [Recovering/Resolving]
  - Eosinophil count increased [Recovering/Resolving]
  - Blood lactate dehydrogenase increased [Recovering/Resolving]
  - Blood cholesterol increased [Recovering/Resolving]
  - Glomerular filtration rate increased [Recovering/Resolving]
  - Blood urea increased [Recovering/Resolving]
  - Alpha 1 globulin increased [Recovering/Resolving]
  - Alpha 2 globulin increased [Recovering/Resolving]
  - Blood pressure diastolic decreased [Recovering/Resolving]
  - Red blood cell sedimentation rate increased [Unknown]
  - Protein total decreased [Recovering/Resolving]
  - Dysgeusia [Unknown]
  - Restless legs syndrome [Unknown]
  - Blood glucose increased [Recovering/Resolving]
  - Nausea [Unknown]
  - C-reactive protein increased [Recovering/Resolving]
  - Fatigue [Unknown]
  - Pain [Unknown]
  - Asthenia [Unknown]
  - Blood pressure systolic increased [Recovering/Resolving]
  - Lymphocyte count decreased [Recovering/Resolving]
  - Leukopenia [Recovering/Resolving]
  - Alopecia [Unknown]
